FAERS Safety Report 9200562 (Version 2)
Quarter: 2013Q2

REPORT INFORMATION
  Report Type: Spontaneous
  Country: US (occurrence: US)
  Receive Date: 20130329
  Receipt Date: 20130411
  Transmission Date: 20140414
  Serious: Yes (Hospitalization, Other)
  Sender: FDA-Public Use
  Company Number: US-BAYER-2013-040194

PATIENT
  Age: 80 Year
  Sex: Female
  Weight: 50 kg

DRUGS (4)
  1. XARELTO [Suspect]
     Indication: HIP ARTHROPLASTY
     Dosage: 10 MG, QD
     Dates: start: 20120930, end: 20120930
  2. XARELTO [Interacting]
     Indication: THROMBOSIS PROPHYLAXIS
  3. DIPYRIDAMOLE [Interacting]
     Indication: PRODUCT USED FOR UNKNOWN INDICATION
     Route: 065
  4. FLUOXETINE [Interacting]
     Indication: PRODUCT USED FOR UNKNOWN INDICATION
     Route: 065

REACTIONS (2)
  - Haematoma [Unknown]
  - Haemoglobin decreased [Recovering/Resolving]
